FAERS Safety Report 7392621-1 (Version None)
Quarter: 2011Q2

REPORT INFORMATION
  Report Type: 
  Country: None (occurrence: None)
  Receive Date: 20110404
  Receipt Date: 20110329
  Transmission Date: 20111010
  Serious: Yes (Hospitalization)
  Sender: FDA-Public Use
  Company Number: US-AMGEN-USACT2011016712

PATIENT
  Age: 55 Year
  Sex: Male
  Weight: 99.1 kg

DRUGS (7)
  1. OXYCODONE [Concomitant]
     Dosage: 10 MG, PRN
     Route: 048
  2. IRINOTECAN HCL [Concomitant]
     Indication: COLORECTAL CANCER
     Dosage: 200 MG, Q2WK
     Route: 042
     Dates: start: 20110304
  3. PANITUMUMAB [Suspect]
     Indication: COLORECTAL CANCER
     Dosage: 640 MG, Q2WK
     Dates: start: 20110304
  4. NORCO [Concomitant]
     Dosage: 10 MG, PRN
     Route: 048
  5. IMODIUM MULTI-SYMPTOM RELIEF [Concomitant]
     Dosage: UNK UNK, PRN
     Route: 048
  6. ERLOTINIB HYDROCHLORIDE [Concomitant]
     Indication: COLORECTAL CANCER METASTATIC
     Dosage: 100 MG, QD
     Route: 048
     Dates: start: 20110318, end: 20110323
  7. OXYCONTIN [Concomitant]
     Dosage: 10 MG, PRN

REACTIONS (2)
  - SMALL INTESTINAL OBSTRUCTION [None]
  - WHITE BLOOD CELL COUNT DECREASED [None]
